FAERS Safety Report 17806043 (Version 1)
Quarter: 2020Q2

REPORT INFORMATION
  Report Type: Spontaneous
  Country: JP (occurrence: JP)
  Receive Date: 20200520
  Receipt Date: 20200520
  Transmission Date: 20200714
  Serious: No
  Sender: FDA-Public Use
  Company Number: JP-LUPIN PHARMACEUTICALS INC.-2019-08077

PATIENT
  Sex: Female

DRUGS (2)
  1. QUETIAPINE 100 MG TABLET [Suspect]
     Active Substance: QUETIAPINE
     Indication: PRODUCT USED FOR UNKNOWN INDICATION
     Dosage: 200 MILLIGRAM, QD (COMBINATION OF QUETIAPINE TABLET 25 MG AND 100 MG WITH THE TOTAL AMOUNT OF 175 MG
     Route: 048
     Dates: start: 20191120
  2. QUETIAPINE 25 MG TABLET [Suspect]
     Active Substance: QUETIAPINE FUMARATE
     Indication: PRODUCT USED FOR UNKNOWN INDICATION
     Dosage: 175 MILLIGRAM, QD (COMBINATION OF QUETIAPINE TABLET 25 MG AND 100 MG WITH THE TOTAL AMOUNT OF 175 MG
     Route: 048

REACTIONS (2)
  - Hypoglycaemia [Recovered/Resolved]
  - Nausea [Unknown]

NARRATIVE: CASE EVENT DATE: 20191128
